FAERS Safety Report 13581367 (Version 5)
Quarter: 2017Q4

REPORT INFORMATION
  Report Type: Spontaneous
  Country: JP (occurrence: JP)
  Receive Date: 20170525
  Receipt Date: 20171213
  Transmission Date: 20180320
  Serious: Yes (Other)
  Sender: FDA-Public Use
  Company Number: JP-ROCHE-1939993

PATIENT
  Age: 51 Year
  Sex: Female

DRUGS (19)
  1. ACTEMRA [Suspect]
     Active Substance: TOCILIZUMAB
     Route: 058
     Dates: start: 20170521
  2. DICLOFENAC SODIUM. [Concomitant]
     Active Substance: DICLOFENAC SODIUM
     Route: 061
     Dates: start: 20170415
  3. VOLTAREN [Suspect]
     Active Substance: DICLOFENAC SODIUM
     Indication: PRODUCT USED FOR UNKNOWN INDICATION
     Dosage: DOSAGE IS UNCERTAIN.
     Route: 065
     Dates: start: 20161124
  4. ACTEMRA [Suspect]
     Active Substance: TOCILIZUMAB
     Route: 058
     Dates: start: 20170409
  5. LIMETHASON [Concomitant]
     Active Substance: DEXAMETHASONE PALMITATE
     Dosage: DOSAGE IS UNCERTAIN.
     Route: 042
     Dates: start: 20161121
  6. CELECOX [Concomitant]
     Active Substance: CELECOXIB
     Dosage: THE FRACTIONATION DOSE FREQUENCY IS UNCERTAIN. ?DOSE INTERVAL UNCERTAINTY
     Route: 048
     Dates: start: 20161121
  7. ACTEMRA [Suspect]
     Active Substance: TOCILIZUMAB
     Route: 058
     Dates: start: 20161210
  8. ACTEMRA [Suspect]
     Active Substance: TOCILIZUMAB
     Route: 058
     Dates: start: 20170423
  9. ACTEMRA [Suspect]
     Active Substance: TOCILIZUMAB
     Route: 058
     Dates: start: 20161225
  10. VOLTAREN [Suspect]
     Active Substance: DICLOFENAC SODIUM
     Dosage: TAKEN FOR PAIN
     Route: 054
     Dates: start: 20170415
  11. CELECOX [Concomitant]
     Active Substance: CELECOXIB
     Route: 048
     Dates: start: 20170415
  12. TAKECAB [Concomitant]
     Active Substance: VONOPRAZAN FUMURATE
     Route: 048
     Dates: start: 20170415
  13. ACTEMRA [Suspect]
     Active Substance: TOCILIZUMAB
     Route: 058
     Dates: start: 20170507
  14. TSUMURA DAIKENCHUTO [Concomitant]
     Active Substance: HERBALS
     Dosage: EXTRACT GRANULES FOR ETHICAL USE
     Route: 048
     Dates: start: 20170415
  15. TAKECAB [Concomitant]
     Active Substance: VONOPRAZAN FUMURATE
     Dosage: DOSAGE IS UNCERTAIN.
     Route: 048
     Dates: start: 20161121
  16. LOTRIGA [Concomitant]
     Active Substance: OMEGA-3-ACID ETHYL ESTERS
     Dosage: .
     Route: 048
     Dates: start: 20170305
  17. ACTEMRA [Suspect]
     Active Substance: TOCILIZUMAB
     Indication: RHEUMATOID ARTHRITIS
     Route: 058
     Dates: start: 20161118, end: 20170521
  18. LOTRIGA [Concomitant]
     Active Substance: OMEGA-3-ACID ETHYL ESTERS
     Route: 048
     Dates: start: 20170415
  19. MOHRUS TAPE [Concomitant]
     Active Substance: KETOPROFEN
     Route: 061
     Dates: start: 20170415

REACTIONS (14)
  - Ascites [Not Recovered/Not Resolved]
  - Low density lipoprotein increased [Unknown]
  - Nausea [Unknown]
  - Blood lactate dehydrogenase increased [Unknown]
  - Hot flush [Unknown]
  - Viral tracheitis [Unknown]
  - Constipation [Unknown]
  - Abdominal distension [Unknown]
  - Lymphocyte count abnormal [Unknown]
  - Lymphoma [Unknown]
  - Hyperhidrosis [Unknown]
  - Diarrhoea [Unknown]
  - Blood cholesterol increased [Unknown]
  - Decreased appetite [Unknown]

NARRATIVE: CASE EVENT DATE: 20161225
